FAERS Safety Report 5748061-1 (Version None)
Quarter: 2008Q2

REPORT INFORMATION
  Report Type: 
  Country: None (occurrence: None)
  Receive Date: 20080523
  Receipt Date: 20080513
  Transmission Date: 20081010
  Serious: Yes (Other)
  Sender: FDA-Public Use
  Company Number: FR-ELI_LILLY_AND_COMPANY-FR200803006104

PATIENT
  Age: 51 Year
  Sex: Female
  Weight: 90 kg

DRUGS (5)
  1. CYMBALTA [Suspect]
     Indication: DEPRESSION
     Dosage: 60 MG, DAILY (1/D)
     Route: 048
     Dates: start: 20080130, end: 20080227
  2. ABILIFY [Concomitant]
     Indication: DEPRESSION
     Dosage: 5 MG, DAILY (1/D)
     Route: 048
     Dates: start: 20070201
  3. TERALITHE [Concomitant]
     Indication: DEPRESSION
     Dosage: 2.5 D/F, DAILY (1/D)
     Route: 048
     Dates: start: 20071201
  4. TERCIAN [Concomitant]
     Indication: ANXIETY
     Dosage: 25 MG, DAILY (1/D)
     Route: 048
     Dates: start: 20071201
  5. PAROXETINE HCL [Concomitant]
     Indication: DEPRESSION
     Dosage: 60 MG, DAILY (1/D)
     Route: 048
     Dates: start: 20070201

REACTIONS (1)
  - TYPE 2 DIABETES MELLITUS [None]
